FAERS Safety Report 6788219-6 (Version None)
Quarter: 2010Q2

REPORT INFORMATION
  Report Type: 
  Country: None (occurrence: None)
  Receive Date: 20100623
  Receipt Date: 20080414
  Transmission Date: 20101027
  Serious: No
  Sender: FDA-Public Use
  Company Number: US-PFIZER INC-2008015874

PATIENT
  Sex: Male

DRUGS (1)
  1. GEODON [Suspect]

REACTIONS (5)
  - DISORIENTATION [None]
  - DRUG INTOLERANCE [None]
  - SEDATION [None]
  - SOMNOLENCE [None]
  - UNEVALUABLE EVENT [None]
